FAERS Safety Report 14762137 (Version 1)
Quarter: 2018Q2

REPORT INFORMATION
  Report Type: Spontaneous
  Country: US (occurrence: US)
  Receive Date: 20180416
  Receipt Date: 20180416
  Transmission Date: 20180711
  Serious: No
  Sender: FDA-Public Use
  Company Number: US-009507513-1803USA011221

PATIENT
  Sex: Female

DRUGS (3)
  1. SONATA [Suspect]
     Active Substance: ZALEPLON
     Dosage: UNK
  2. BELSOMRA [Suspect]
     Active Substance: SUVOREXANT
     Dosage: ONE PILL ONCE PER NIGHT
     Route: 048
  3. LUNESTA [Suspect]
     Active Substance: ESZOPICLONE
     Dosage: UNK

REACTIONS (3)
  - Product substitution [Unknown]
  - Drug ineffective [Unknown]
  - Drug dose omission [Unknown]
